FAERS Safety Report 8226667 (Version 2)
Quarter: 2012Q4

REPORT INFORMATION
  Report Type: 
  Country: US (occurrence: US)
  Receive Date: 20111103
  Receipt Date: 20121107
  Transmission Date: 20130627
  Serious: No
  Sender: FDA-Public Use
  Company Number: US-AMGEN-USASP2011037292

PATIENT
  Age: 40 Year
  Sex: Female
  Weight: 63.49 kg

DRUGS (4)
  1. ENBREL [Suspect]
     Indication: RHEUMATOID ARTHRITIS
     Dosage: 50 mg, qwk
     Route: 058
     Dates: start: 20110412, end: 201107
  2. PREDNISONE [Concomitant]
     Dosage: 1 mg, UNK
     Route: 048
  3. KLONOPIN [Concomitant]
     Dosage: 0.5 mg, UNK
     Route: 048
  4. OXYCODONE [Concomitant]
     Dosage: 5 mg, UNK
     Route: 048

REACTIONS (3)
  - Pain [Not Recovered/Not Resolved]
  - Rash maculo-papular [Not Recovered/Not Resolved]
  - Rash erythematous [Unknown]
